FAERS Safety Report 12079975 (Version 16)
Quarter: 2020Q4

REPORT INFORMATION
  Report Type: Spontaneous
  Country: BR (occurrence: BR)
  Receive Date: 20160216
  Receipt Date: 20201118
  Transmission Date: 20210113
  Serious: Yes (Other)
  Sender: FDA-Public Use
  Company Number: BR-JNJFOC-20160211114

PATIENT
  Age: 42 Year
  Sex: Female
  Weight: 60 kg

DRUGS (18)
  1. BETAMETHASONE. [Concomitant]
     Active Substance: BETAMETHASONE
     Route: 065
  2. POLYACRYLIC ACID [Concomitant]
     Route: 065
  3. DEFLAZACORT [Concomitant]
     Active Substance: DEFLAZACORT
     Route: 065
  4. BETACORT                           /00008501/ [Concomitant]
  5. DEPAKOTE [Concomitant]
     Active Substance: DIVALPROEX SODIUM
     Route: 065
  6. CIMICIFUGA RACEMOSA [Concomitant]
     Active Substance: BLACK COHOSH
     Route: 065
  7. SIMPONI [Suspect]
     Active Substance: GOLIMUMAB
     Indication: RHEUMATOID ARTHRITIS
     Route: 058
     Dates: start: 20150901
  8. SIMPONI [Suspect]
     Active Substance: GOLIMUMAB
     Dosage: TWICE, ONE BY 15 DAYS AND THE OTHER BY 5 DAYS
     Route: 058
  9. METHOTREXATE. [Suspect]
     Active Substance: METHOTREXATE
     Indication: PRODUCT USED FOR UNKNOWN INDICATION
     Route: 065
     Dates: start: 201706
  10. DECOCORT [Concomitant]
     Route: 065
  11. SOMATROPINE [Concomitant]
     Active Substance: SOMATROPIN
  12. SIMPONI [Suspect]
     Active Substance: GOLIMUMAB
     Route: 058
     Dates: start: 20151024
  13. CYCLOBENZAPRINE. [Concomitant]
     Active Substance: CYCLOBENZAPRINE
     Route: 065
  14. NIMESULIDE [Concomitant]
     Active Substance: NIMESULIDE
     Route: 065
  15. FAMOTIDINE. [Concomitant]
     Active Substance: FAMOTIDINE
     Route: 065
  16. FOLIC ACID. [Suspect]
     Active Substance: FOLIC ACID
     Indication: PRODUCT USED FOR UNKNOWN INDICATION
     Route: 065
     Dates: start: 201706
  17. KETOPROFEN. [Concomitant]
     Active Substance: KETOPROFEN
     Route: 065
  18. DIPROSONE [Concomitant]
     Active Substance: BETAMETHASONE DIPROPIONATE
     Indication: PAIN
     Route: 065

REACTIONS (25)
  - Accidental exposure to product [Unknown]
  - Seasonal allergy [Unknown]
  - Product storage error [Unknown]
  - Fall [Unknown]
  - Dizziness [Unknown]
  - Off label use [Unknown]
  - Peripheral swelling [Unknown]
  - Medication error [Unknown]
  - Product use issue [Unknown]
  - Heart rate increased [Unknown]
  - Underdose [Unknown]
  - Nasopharyngitis [Unknown]
  - Weight increased [Unknown]
  - Rheumatoid arthritis [Not Recovered/Not Resolved]
  - Nausea [Unknown]
  - Menopause [Unknown]
  - Hepatic steatosis [Unknown]
  - Product availability issue [Unknown]
  - Muscular weakness [Unknown]
  - Headache [Unknown]
  - Therapeutic response decreased [Not Recovered/Not Resolved]
  - Blood pressure increased [Unknown]
  - Inappropriate schedule of product administration [Unknown]
  - Influenza [Unknown]
  - Product dose omission issue [Unknown]

NARRATIVE: CASE EVENT DATE: 20160122
